FAERS Safety Report 6520960-2 (Version None)
Quarter: 2009Q4

REPORT INFORMATION
  Report Type: 
  Country: None (occurrence: None)
  Receive Date: 20091229
  Receipt Date: 20091215
  Transmission Date: 20100525
  Serious: Yes (Hospitalization)
  Sender: FDA-Public Use
  Company Number: DE-AMGEN-US374073

PATIENT
  Age: 63 Year
  Sex: Female

DRUGS (2)
  1. ENBREL [Suspect]
     Indication: RHEUMATOID ARTHRITIS
     Route: 058
     Dates: start: 20081216, end: 20090902
  2. ENBREL [Suspect]
     Indication: POLYARTHRITIS
     Route: 058
     Dates: start: 20091102, end: 20091201

REACTIONS (4)
  - JOINT EFFUSION [None]
  - MENISCUS LESION [None]
  - PATELLA FRACTURE [None]
  - SYNOVECTOMY [None]
